FAERS Safety Report 25369533 (Version 1)
Quarter: 2025Q2

REPORT INFORMATION
  Report Type: Spontaneous
  Country: AU (occurrence: AU)
  Receive Date: 20250528
  Receipt Date: 20250528
  Transmission Date: 20250716
  Serious: Yes (Death)
  Sender: GALPHARM INTERNATIONAL
  Company Number: None

PATIENT
  Age: 47 Year
  Sex: Male

DRUGS (2)
  1. ACETAMINOPHEN [Suspect]
     Active Substance: ACETAMINOPHEN
     Indication: Pain
     Dosage: 4 G, QD
     Route: 065
  2. ACETAMINOPHEN [Suspect]
     Active Substance: ACETAMINOPHEN
     Indication: Pyrexia
     Dosage: 4 G, QD
     Route: 065

REACTIONS (12)
  - Abdominal pain [Fatal]
  - Abdominal tenderness [Fatal]
  - Acute hepatic failure [Fatal]
  - Brain injury [Fatal]
  - Decreased appetite [Fatal]
  - Fatigue [Fatal]
  - Hallucination [Fatal]
  - Immobile [Fatal]
  - Liver injury [Fatal]
  - Overdose [Fatal]
  - Pain [Fatal]
  - Tachycardia [Fatal]
